FAERS Safety Report 25490446 (Version 2)
Quarter: 2025Q3

REPORT INFORMATION
  Report Type: Spontaneous
  Country: US (occurrence: US)
  Receive Date: 20250627
  Receipt Date: 20250912
  Transmission Date: 20251021
  Serious: Yes (Other)
  Sender: MERCK SHARP & DOHME LLC
  Company Number: US-009507513-2296663

PATIENT
  Age: 65 Year
  Sex: Female

DRUGS (1)
  1. KEYTRUDA [Suspect]
     Active Substance: PEMBROLIZUMAB
     Indication: Malignant melanoma
     Route: 042
     Dates: start: 20230615, end: 202403

REACTIONS (14)
  - Lymphadenectomy [Unknown]
  - Ear pain [Unknown]
  - Fatigue [Recovered/Resolved]
  - Myalgia [Unknown]
  - Gastroenteritis [Unknown]
  - Urinary incontinence [Unknown]
  - Weight decreased [Unknown]
  - Muscle atrophy [Unknown]
  - Fatigue [Recovered/Resolved]
  - Arthralgia [Unknown]
  - Vertigo [Unknown]
  - Bladder disorder [Unknown]
  - Ulcer [Unknown]
  - Mass [Unknown]

NARRATIVE: CASE EVENT DATE: 20231001
